FAERS Safety Report 13211257 (Version 3)
Quarter: 2017Q2

REPORT INFORMATION
  Report Type: Spontaneous
  Country: US (occurrence: US)
  Receive Date: 20170210
  Receipt Date: 20170502
  Transmission Date: 20170830
  Serious: No
  Sender: FDA-Public Use
  Company Number: US-PFIZER INC-2017055194

PATIENT
  Age: 49 Year
  Sex: Male
  Weight: 114 kg

DRUGS (1)
  1. SUTENT [Suspect]
     Active Substance: SUNITINIB MALATE
     Indication: METASTASES TO KIDNEY
     Dosage: 50 MG, CYCLIC (DAY 1-28 EVERY 42 DAYS) (D1-28 Q 42 DAYS)
     Route: 048
     Dates: start: 20170201

REACTIONS (3)
  - Gastrooesophageal reflux disease [Unknown]
  - Neoplasm progression [Unknown]
  - Constipation [Unknown]

NARRATIVE: CASE EVENT DATE: 2017
